FAERS Safety Report 24540687 (Version 1)
Quarter: 2024Q4

REPORT INFORMATION
  Report Type: Spontaneous
  Country: US (occurrence: None)
  Receive Date: 20241023
  Receipt Date: 20241023
  Transmission Date: 20250115
  Serious: Yes (Disabling)
  Sender: Public
  Company Number: None

PATIENT
  Age: 83 Year
  Sex: Female
  Weight: 55.79 kg

DRUGS (1)
  1. MESALAMINE [Suspect]
     Active Substance: MESALAMINE
     Indication: Colitis microscopic
     Dosage: OTHER FREQUENCY : IN THE MORNING;?
     Route: 048
     Dates: start: 20240908, end: 20240910

REACTIONS (5)
  - Product prescribing issue [None]
  - Withdrawal syndrome [None]
  - Diarrhoea [None]
  - Diarrhoea [None]
  - Anal incontinence [None]
